FAERS Safety Report 23116980 (Version 1)
Quarter: 2023Q4

REPORT INFORMATION
  Report Type: Spontaneous
  Country: US (occurrence: None)
  Receive Date: 20231026
  Receipt Date: 20231026
  Transmission Date: 20240110
  Serious: Yes (Hospitalization)
  Sender: FDA-Public Use
  Company Number: None

PATIENT
  Sex: Female

DRUGS (1)
  1. SIMPONI [Suspect]
     Active Substance: GOLIMUMAB
     Indication: Polyarthritis
     Dosage: OTHER QUANTITY : 50MG/0.5ML;?OTHER FREQUENCY : EVERY 28 DAYS;?
     Route: 058
     Dates: start: 20191031

REACTIONS (3)
  - Arthritis [None]
  - Loss of personal independence in daily activities [None]
  - Infection [None]
